FAERS Safety Report 24796784 (Version 1)
Quarter: 2025Q1

REPORT INFORMATION
  Report Type: Spontaneous
  Country: IL (occurrence: IL)
  Receive Date: 20250101
  Receipt Date: 20250101
  Transmission Date: 20250409
  Serious: Yes (Hospitalization)
  Sender: AMGEN
  Company Number: IL-AMGEN-ISRSP2024253746

PATIENT

DRUGS (1)
  1. ADALIMUMAB [Suspect]
     Active Substance: ADALIMUMAB
     Indication: Crohn^s disease
     Route: 065

REACTIONS (10)
  - Unevaluable event [Unknown]
  - Infection [Unknown]
  - Loss of therapeutic response [Unknown]
  - Drug intolerance [Unknown]
  - Drug ineffective [Unknown]
  - Therapy non-responder [Unknown]
  - Hypersensitivity [Unknown]
  - Rash [Unknown]
  - Therapy cessation [Unknown]
  - Surgery [Unknown]
